FAERS Safety Report 10880388 (Version 1)
Quarter: 2015Q1

REPORT INFORMATION
  Report Type: Report from Study
  Country: NL (occurrence: NL)
  Receive Date: 20150302
  Receipt Date: 20150302
  Transmission Date: 20150721
  Serious: Yes (Hospitalization)
  Sender: FDA-Public Use
  Company Number: NL-ROCHE-1526202

PATIENT
  Age: 44 Year
  Sex: Female

DRUGS (17)
  1. EPIRUBICIN [Suspect]
     Active Substance: EPIRUBICIN
     Dosage: LAST DOSE PRIOR TO SAE: 24/DEC/2014 162 MG
     Route: 042
  2. PERTUZUMAB [Suspect]
     Active Substance: PERTUZUMAB
     Indication: HER-2 POSITIVE BREAST CANCER
     Dosage: LOADING DOSE
     Route: 042
     Dates: start: 20141113
  3. FLUOROURACIL. [Suspect]
     Active Substance: FLUOROURACIL
     Indication: HER-2 POSITIVE BREAST CANCER
     Dosage: ON DAY 1
     Route: 042
     Dates: start: 20141113
  4. LACTULOSE. [Concomitant]
     Active Substance: LACTULOSE
     Dosage: 1X15 ML.
     Route: 065
     Dates: start: 20150121
  5. TRASTUZUMAB [Suspect]
     Active Substance: TRASTUZUMAB
     Dosage: MOST RECENT DOSE PRIOR TO SAE: 15/JAN/2015 462 MG
     Route: 042
     Dates: start: 20141113
  6. FLUOROURACIL. [Suspect]
     Active Substance: FLUOROURACIL
     Dosage: LAST DOSE PRIOR TO SAE: 24/DEC/2014 900 MG
     Route: 042
  7. CYCLOPHOSPHAMIDE. [Suspect]
     Active Substance: CYCLOPHOSPHAMIDE
     Dosage: LAST DOSE PRIOR TO SAE 24/DEC/2014: 900 MG
     Route: 042
  8. ZOFRAN [Concomitant]
     Active Substance: ONDANSETRON HYDROCHLORIDE
     Dosage: MG
     Route: 065
     Dates: start: 20150121
  9. PERTUZUMAB [Suspect]
     Active Substance: PERTUZUMAB
     Dosage: LAST DOSE PRIOR TO SAE: 15/JAN/2015 420 MG
     Route: 042
     Dates: start: 20141113
  10. CARBOPLATIN. [Suspect]
     Active Substance: CARBOPLATIN
     Indication: HER-2 POSITIVE BREAST CANCER
     Dosage: LAST DOSE PRIOR TO SAE?SHE RECEIVED MOST RECENT DOSE ON 15/FEB/2015
     Route: 042
     Dates: start: 20150115
  11. CYCLOPHOSPHAMIDE. [Suspect]
     Active Substance: CYCLOPHOSPHAMIDE
     Indication: HER-2 POSITIVE BREAST CANCER
     Dosage: ON DAY 1
     Route: 042
     Dates: start: 20141113
  12. PRIMPERAN [Concomitant]
     Active Substance: METOCLOPRAMIDE HYDROCHLORIDE
     Dosage: 3X10 MG
     Route: 065
     Dates: start: 20150121
  13. FRAXIPARINE [Concomitant]
     Active Substance: NADROPARIN CALCIUM
     Dosage: 5700 UNIT
     Route: 065
     Dates: start: 20150121
  14. PACLITAXEL. [Suspect]
     Active Substance: PACLITAXEL
     Indication: HER-2 POSITIVE BREAST CANCER
     Dosage: LAST DOSE PRIOR TO SAE?SHE RECEIVED MOST RECENT DOSE ON 15/FEB/2015
     Route: 042
     Dates: start: 20150115
  15. LORAZEPAM. [Concomitant]
     Active Substance: LORAZEPAM
     Dosage: 2X1 MG
     Route: 065
     Dates: start: 20150114
  16. TRASTUZUMAB [Suspect]
     Active Substance: TRASTUZUMAB
     Indication: HER-2 POSITIVE BREAST CANCER
     Dosage: LOADING DOSE
     Route: 042
     Dates: start: 20141113
  17. EPIRUBICIN [Suspect]
     Active Substance: EPIRUBICIN
     Indication: HER-2 POSITIVE BREAST CANCER
     Dosage: ON DAY 1
     Route: 042
     Dates: start: 20141113

REACTIONS (1)
  - Dehydration [Unknown]

NARRATIVE: CASE EVENT DATE: 20150121
